FAERS Safety Report 15614030 (Version 1)
Quarter: 2018Q4

REPORT INFORMATION
  Report Type: Spontaneous
  Country: PL (occurrence: PL)
  Receive Date: 20181113
  Receipt Date: 20181113
  Transmission Date: 20190205
  Serious: Yes (Hospitalization)
  Sender: FDA-Public Use
  Company Number: PHHY2018PL151890

PATIENT
  Age: 5 Year
  Sex: Male

DRUGS (4)
  1. CEFOTAXIME [Suspect]
     Active Substance: CEFOTAXIME SODIUM
     Indication: PNEUMONIA
     Dosage: 300 MG/KG, UNK (300 MG/KG OF BODY WEIGHT/24 H-100 MG/KG OF BODY WEIGHT/DOSE)
     Route: 065
  2. VANCOMYCIN [Suspect]
     Active Substance: VANCOMYCIN
     Indication: PNEUMONIA
     Dosage: 60 MG/KG, UNK (60 MG/KG OF BODY WEIGHT/24 H 15 MG/KG OF BODY WEIGHT/DOSE)
     Route: 042
  3. UROKINASE [Suspect]
     Active Substance: UROKINASE
     Indication: PNEUMONIA
     Dosage: 40000 IU, UNK
     Route: 065
  4. UROKINASE [Suspect]
     Active Substance: UROKINASE
     Dosage: UNK (UROKINASE WAS APPLIED TO THE RIGHT PLEURAL CAVITY 2X40 UNITS/24H)
     Route: 065

REACTIONS (1)
  - Drug ineffective [Recovering/Resolving]
